FAERS Safety Report 11745962 (Version 1)
Quarter: 2015Q4

REPORT INFORMATION
  Report Type: Spontaneous
  Country: US (occurrence: None)
  Receive Date: 20151116
  Receipt Date: 20151116
  Transmission Date: 20160304
  Serious: No
  Sender: FDA-Public Use
  Company Number: None

PATIENT
  Age: 31 Year
  Sex: Male
  Weight: 70 kg

DRUGS (1)
  1. LEVOFLOXACIN. [Suspect]
     Active Substance: LEVOFLOXACIN
     Indication: BACTERAEMIA
     Dosage: Q DAY (ONLY GIVEN ONCE)
     Route: 042
     Dates: start: 20150920

REACTIONS (7)
  - Tachypnoea [None]
  - Dysphonia [None]
  - Heart rate increased [None]
  - Wheezing [None]
  - Dysphagia [None]
  - Throat tightness [None]
  - Infusion related reaction [None]

NARRATIVE: CASE EVENT DATE: 20150920
